FAERS Safety Report 10264914 (Version 1)
Quarter: 2014Q2

REPORT INFORMATION
  Report Type: Spontaneous
  Country: GB (occurrence: None)
  Receive Date: 20140624
  Receipt Date: 20140624
  Transmission Date: 20141212
  Serious: Yes (Other)
  Sender: FDA-Public Use
  Company Number: AUR-APL-2014-06597

PATIENT
  Sex: Male

DRUGS (1)
  1. METFORMIN [Suspect]
     Indication: TYPE 2 DIABETES MELLITUS

REACTIONS (4)
  - Diabetes mellitus inadequate control [None]
  - Hypoglycaemia [None]
  - Inappropriate schedule of drug administration [None]
  - Drug effect decreased [None]
